FAERS Safety Report 12591614 (Version 1)
Quarter: 2016Q3

REPORT INFORMATION
  Report Type: Spontaneous
  Country: US (occurrence: None)
  Receive Date: 20160725
  Receipt Date: 20160725
  Transmission Date: 20161109
  Serious: Yes (Other)
  Sender: FDA-Public Use
  Company Number: None

PATIENT
  Age: 34 Year
  Sex: Female
  Weight: 81.65 kg

DRUGS (2)
  1. MISOPROSTOL. [Suspect]
     Active Substance: MISOPROSTOL
     Indication: ABORTION MISSED
     Dosage: 3 TABLET(S) EVERY 3 HRS X3TIME TAKEN UNDER THE TONGUE
     Route: 060
     Dates: start: 20160723, end: 20160723
  2. CLARINEX [Concomitant]
     Active Substance: DESLORATADINE

REACTIONS (3)
  - Pruritus [None]
  - Swelling [None]
  - Therapy cessation [None]

NARRATIVE: CASE EVENT DATE: 20160723
